FAERS Safety Report 19523607 (Version 1)
Quarter: 2021Q3

REPORT INFORMATION
  Report Type: Spontaneous
  Country: TR (occurrence: TR)
  Receive Date: 20210712
  Receipt Date: 20210712
  Transmission Date: 20211014
  Serious: Yes (Hospitalization)
  Sender: FDA-Public Use
  Company Number: TR-ELI_LILLY_AND_COMPANY-TR202107001070

PATIENT
  Sex: Female

DRUGS (2)
  1. FORSTEO [Suspect]
     Active Substance: TERIPARATIDE
     Dosage: UNK UNK, DAILY
     Route: 058
  2. FORSTEO [Suspect]
     Active Substance: TERIPARATIDE
     Indication: OSTEOPOROSIS
     Dosage: UNK UNK, DAILY
     Route: 058
     Dates: start: 20210213

REACTIONS (1)
  - Osteoporotic fracture [Unknown]
